FAERS Safety Report 4332606-2 (Version None)
Quarter: 2004Q1

REPORT INFORMATION
  Report Type: 
  Country: None (occurrence: None)
  Receive Date: 20040330
  Receipt Date: 20040318
  Transmission Date: 20041129
  Serious: Yes (Death, Hospitalization)
  Sender: FDA-Public Use
  Company Number: 02100-JPN-04-0020

PATIENT
  Age: 81 Year
  Sex: Male

DRUGS (11)
  1. CILOSTAZOL [Suspect]
     Indication: ANGINA PECTORIS
     Dosage: 200 MG
     Route: 048
     Dates: start: 20010601, end: 20031231
  2. AMIODARONE HYDROCHLORIDE [Suspect]
     Dosage: 200 MG
     Route: 048
     Dates: start: 20030301, end: 20031231
  3. THYROID TAB [Concomitant]
  4. RANITIDINE HYDROCHLORIDE [Concomitant]
  5. ASPIRIN [Concomitant]
  6. PRECIPITATED CALCIUM CARBONATE [Concomitant]
  7. FUROSEMIDE [Concomitant]
  8. FAMOTIDINE [Concomitant]
  9. HEPARIN SODIUM [Concomitant]
  10. EPOETIN BETA [Concomitant]
  11. ASPIRIN/DIALUMINATE [Concomitant]

REACTIONS (13)
  - BLOOD PRESSURE DECREASED [None]
  - ENTEROCOLITIS VIRAL [None]
  - GENERAL PHYSICAL HEALTH DETERIORATION [None]
  - HAEMODIALYSIS [None]
  - HAEMOPTYSIS [None]
  - INTERSTITIAL LUNG DISEASE [None]
  - OPPORTUNISTIC INFECTION [None]
  - PALPITATIONS [None]
  - PLATELET COUNT DECREASED [None]
  - PLEURAL EFFUSION [None]
  - PNEUMONIA [None]
  - RESPIRATORY FAILURE [None]
  - VENTRICULAR EXTRASYSTOLES [None]
